FAERS Safety Report 26012729 (Version 1)
Quarter: 2025Q4

REPORT INFORMATION
  Report Type: Spontaneous
  Country: US (occurrence: US)
  Receive Date: 20251107
  Receipt Date: 20251107
  Transmission Date: 20260119
  Serious: No
  Sender: XERIS PHARMACEUTICALS
  Company Number: US-BRIAN CONNER SVP QUALITY AND CHIEF COMPLIANCE OFFICER-2025XER00010

PATIENT
  Age: 18 Year
  Sex: Female
  Weight: 63.503 kg

DRUGS (2)
  1. GVOKE KIT [Suspect]
     Active Substance: GLUCAGON
     Indication: Hypoglycaemia
     Dosage: MINI DOSE (15 IU), ONCE
     Route: 058
     Dates: start: 20250106
  2. INSULIN LISPRO [Concomitant]
     Active Substance: INSULIN LISPRO

REACTIONS (5)
  - Screaming [Recovering/Resolving]
  - Insomnia [Unknown]
  - Injection site erythema [Not Recovered/Not Resolved]
  - Injection site swelling [Not Recovered/Not Resolved]
  - Injection site pain [Unknown]

NARRATIVE: CASE EVENT DATE: 20250106
